FAERS Safety Report 5065862-6 (Version None)
Quarter: 2006Q3

REPORT INFORMATION
  Report Type: 
  Country: None (occurrence: None)
  Receive Date: 20060726
  Receipt Date: 20060712
  Transmission Date: 20061208
  Serious: Yes (Death, Hospitalization)
  Sender: FDA-Public Use
  Company Number: 057

PATIENT
  Sex: Male

DRUGS (1)
  1. FAZACLO ODT [Suspect]
     Indication: SCHIZOPHRENIA
     Dosage: 100 MG PO DAILY
     Route: 048
     Dates: start: 20060605, end: 20060711

REACTIONS (2)
  - CARDIAC ARREST [None]
  - PULSE ABSENT [None]
